FAERS Safety Report 11156079 (Version 1)
Quarter: 2015Q2

REPORT INFORMATION
  Report Type: Spontaneous
  Country: US (occurrence: None)
  Receive Date: 20150529
  Receipt Date: 20150529
  Transmission Date: 20150821
  Serious: Yes (Life-Threatening, Hospitalization)
  Sender: FDA-Public Use
  Company Number: None

PATIENT
  Age: 67 Year
  Sex: Female
  Weight: 78 kg

DRUGS (6)
  1. ASA [Concomitant]
     Active Substance: ASPIRIN
  2. LOSARTAN [Concomitant]
     Active Substance: LOSARTAN
  3. LEVOTHYROXINE [Concomitant]
     Active Substance: LEVOTHYROXINE
  4. FERAHEME [Suspect]
     Active Substance: FERUMOXYTOL NON-STOICHIOMETRIC MAGNETITE
     Indication: IRON DEFICIENCY ANAEMIA
     Dosage: 510MG/50ML NSS 2 DOSES,1 WK APART INTRAVENOUS
     Route: 042
  5. MAG OX [Concomitant]
     Active Substance: MAGNESIUM OXIDE
  6. LOVASTATIN. [Concomitant]
     Active Substance: LOVASTATIN

REACTIONS (7)
  - Nausea [None]
  - Vomiting [None]
  - Infusion related reaction [None]
  - Feeling hot [None]
  - No reaction on previous exposure to drug [None]
  - Erythema [None]
  - Chills [None]

NARRATIVE: CASE EVENT DATE: 20150528
